FAERS Safety Report 5398756-7 (Version None)
Quarter: 2007Q3

REPORT INFORMATION
  Report Type: 
  Country: None (occurrence: None)
  Receive Date: 20070726
  Receipt Date: 20061211
  Transmission Date: 20080115
  Serious: No
  Sender: FDA-Public Use
  Company Number: US-AMGEN-KDL203058

PATIENT
  Sex: Male
  Weight: 68 kg

DRUGS (9)
  1. EPOGEN [Suspect]
     Indication: DIALYSIS
  2. AMOXICILLIN [Concomitant]
  3. VITAMIN CAP [Concomitant]
  4. DEPAKOTE [Concomitant]
  5. DIAZEPAM [Concomitant]
  6. RISPERDAL [Concomitant]
  7. TUMS [Concomitant]
  8. PAXIL [Concomitant]
  9. HEPARIN [Concomitant]

REACTIONS (3)
  - SERUM FERRITIN INCREASED [None]
  - THERAPEUTIC RESPONSE DECREASED [None]
  - TRANSFERRIN SATURATION INCREASED [None]
